FAERS Safety Report 11083652 (Version 2)
Quarter: 2015Q2

REPORT INFORMATION
  Report Type: Spontaneous
  Country: FR (occurrence: FR)
  Receive Date: 20150501
  Receipt Date: 20150602
  Transmission Date: 20150821
  Serious: Yes (Hospitalization)
  Sender: FDA-Public Use
  Company Number: FR-BAXTER-2015BAX022316

PATIENT
  Age: 64 Year
  Sex: Female

DRUGS (12)
  1. HOLOXAN 2000 MG, POUDRE POUR USAGE PARENT?RAL [Suspect]
     Active Substance: IFOSFAMIDE
     Route: 065
     Dates: start: 20130508
  2. DACARBAZINE. [Suspect]
     Active Substance: DACARBAZINE
     Indication: SARCOMA UTERUS
     Dosage: FOURTH CYCLE
     Route: 042
     Dates: start: 20130521, end: 20130523
  3. DACARBAZINE. [Suspect]
     Active Substance: DACARBAZINE
     Route: 065
     Dates: start: 20130508
  4. ONDANSETRON [Suspect]
     Active Substance: ONDANSETRON
     Indication: SARCOMA UTERUS
     Dosage: FOURTH CYCLE
     Route: 042
     Dates: start: 20130521, end: 20130523
  5. METHYLPREDNISOLONE. [Suspect]
     Active Substance: METHYLPREDNISOLONE
     Indication: SARCOMA UTERUS
     Dosage: FOURTH CYCLE
     Route: 042
     Dates: start: 20130521, end: 20130523
  6. HOLOXAN 2000 MG, POUDRE POUR USAGE PARENT?RAL [Suspect]
     Active Substance: IFOSFAMIDE
     Dosage: FOURTH CYCLE
     Route: 042
     Dates: start: 20130523, end: 20130523
  7. UROMITEXAN 1 G/10 ML, SOLUTION INJECTABLE POUR PERFUSION EN FLACON [Suspect]
     Active Substance: MESNA
     Indication: SARCOMA UTERUS
     Dosage: FOURTH CYCLE
     Route: 042
     Dates: start: 20130521, end: 20130523
  8. UROMITEXAN 1 G/10 ML, SOLUTION INJECTABLE POUR PERFUSION EN FLACON [Suspect]
     Active Substance: MESNA
     Route: 065
     Dates: start: 20130508
  9. DOXORUBICIN [Suspect]
     Active Substance: DOXORUBICIN
     Indication: SARCOMA UTERUS
     Dosage: FOURTH CYCLE
     Route: 042
     Dates: start: 20130521, end: 20130523
  10. DOXORUBICIN [Suspect]
     Active Substance: DOXORUBICIN
     Route: 065
     Dates: start: 20130508
  11. HOLOXAN 2000 MG, POUDRE POUR USAGE PARENT?RAL [Suspect]
     Active Substance: IFOSFAMIDE
     Indication: SARCOMA UTERUS
     Dosage: FOURTH CYCLE
     Route: 042
     Dates: start: 20130521, end: 20130522
  12. IFOSFAMIDE. [Suspect]
     Active Substance: IFOSFAMIDE
     Indication: SARCOMA UTERUS
     Dosage: FOURTH CYCLE
     Route: 042
     Dates: start: 20130523, end: 20130523

REACTIONS (2)
  - Confusional state [Recovering/Resolving]
  - Dyskinesia [Recovering/Resolving]

NARRATIVE: CASE EVENT DATE: 201305
